FAERS Safety Report 5782497-8 (Version None)
Quarter: 2008Q2

REPORT INFORMATION
  Report Type: 
  Country: None (occurrence: None)
  Receive Date: 20080623
  Receipt Date: 20080611
  Transmission Date: 20081010
  Serious: Yes (Disabling)
  Sender: FDA-Public Use
  Company Number: DE-PFIZER INC-2008047128

PATIENT
  Sex: Male

DRUGS (19)
  1. DOXORUBICIN HCL [Suspect]
     Indication: T-CELL LYMPHOMA
     Dosage: DAILY DOSE:99MG
     Route: 042
  2. DOXORUBICIN HCL [Suspect]
     Dosage: DAILY DOSE:99MG-FREQ:DAY 1
     Route: 042
  3. ETOPOSIDE [Suspect]
     Indication: T-CELL LYMPHOMA
     Dosage: DAILY DOSE:198MG
     Route: 042
  4. ETOPOSIDE [Suspect]
     Dosage: DAILY DOSE:198MG-FREQ:DAYS 1-3
  5. VINCRISTINE [Suspect]
     Indication: T-CELL LYMPHOMA
     Dosage: DAILY DOSE:1MG
  6. VINCRISTINE [Suspect]
     Dosage: DAILY DOSE:2MG
     Route: 042
  7. VINCRISTINE [Suspect]
     Dosage: DAILY DOSE:2MG-FREQ:ON DAY 1
  8. METHOTREXATE [Suspect]
     Indication: T-CELL LYMPHOMA
     Dosage: DAILY DOSE:15MG
     Route: 037
  9. METHOTREXATE [Suspect]
     Dosage: DAILY DOSE:15MG
     Route: 037
  10. METHOTREXATE [Suspect]
     Dosage: DAILY DOSE:15MG-FREQ:ON DAYS 1 AND 5
     Route: 037
  11. METHOTREXATE [Suspect]
     Dosage: DAILY DOSE:15MG
     Route: 037
  12. CYCLOPHOSPHAMIDE [Suspect]
     Indication: T-CELL LYMPHOMA
     Dosage: DAILY DOSE:1490MG
     Route: 042
  13. CYCLOPHOSPHAMIDE [Suspect]
     Dosage: DAILY DOSE:1490MG-FREQ:ON DAY 1
  14. MESNA [Concomitant]
  15. KEVATRIL [Concomitant]
     Dosage: DAILY DOSE:3MG-FREQ:ON DAY 1
     Route: 048
  16. PANTOPRAZOL [Concomitant]
     Dosage: DAILY DOSE:40MG-FREQ:ON DAYS 1-5
  17. LEUCOVORIN CALCIUM [Concomitant]
  18. LEUCOVORIN CALCIUM [Concomitant]
     Route: 048
  19. NEUPOGEN [Concomitant]
     Dosage: FREQ:FROM DAY 5 ONWARDS
     Route: 058

REACTIONS (2)
  - ARTHROPATHY [None]
  - MUSCLE DISORDER [None]
